FAERS Safety Report 5904884-7 (Version None)
Quarter: 2008Q4

REPORT INFORMATION
  Report Type: 
  Country: None (occurrence: None)
  Receive Date: 20081001
  Receipt Date: 20080926
  Transmission Date: 20090506
  Serious: Yes (Death)
  Sender: FDA-Public Use
  Company Number: A0750075A

PATIENT
  Age: 76 Year
  Sex: Female
  Weight: 59.1 kg

DRUGS (4)
  1. AVANDIA [Suspect]
     Indication: DIABETES MELLITUS
     Dosage: 4MG PER DAY
     Route: 048
     Dates: start: 20040616, end: 20070204
  2. ANTIHYPERTENSIVE [Concomitant]
  3. NABUMETONE [Concomitant]
  4. DARVOCET [Concomitant]

REACTIONS (1)
  - MYOCARDIAL INFARCTION [None]
